FAERS Safety Report 12697502 (Version 1)
Quarter: 2016Q3

REPORT INFORMATION
  Report Type: Spontaneous
  Country: JP (occurrence: JP)
  Receive Date: 20160830
  Receipt Date: 20160830
  Transmission Date: 20161109
  Serious: Yes (Hospitalization, Other)
  Sender: FDA-Public Use
  Company Number: JP-APOTEX-2016AP010941

PATIENT
  Age: 59 Year
  Sex: Male

DRUGS (5)
  1. LAMOTRIGINE. [Suspect]
     Active Substance: LAMOTRIGINE
     Indication: SCHIZOAFFECTIVE DISORDER DEPRESSIVE TYPE
     Route: 048
     Dates: start: 20130115, end: 20130120
  2. RISPERDAL INJECTION [Concomitant]
     Indication: HALLUCINATION, AUDITORY
     Route: 030
     Dates: start: 201202
  3. PREDONINE TABLET [Concomitant]
     Indication: RASH
     Route: 048
     Dates: start: 201301
  4. PAXIL [Suspect]
     Active Substance: PAROXETINE HYDROCHLORIDE
     Indication: SCHIZOAFFECTIVE DISORDER DEPRESSIVE TYPE
     Dosage: 20 MG, Q.H.S.
     Route: 048
     Dates: start: 201202
  5. ROHYPNOL TABLET [Concomitant]
     Indication: INSOMNIA
     Route: 048
     Dates: start: 201202

REACTIONS (19)
  - Pyromania [Unknown]
  - Diet noncompliance [Unknown]
  - Suicide attempt [Unknown]
  - Diabetes mellitus [Unknown]
  - Genital lesion [Unknown]
  - Disinhibition [Unknown]
  - Oral mucosa erosion [Unknown]
  - Pyrexia [Unknown]
  - Listless [Unknown]
  - Autism [Unknown]
  - Ocular hyperaemia [Unknown]
  - Erythema of eyelid [Unknown]
  - Blunted affect [Unknown]
  - Stevens-Johnson syndrome [Recovered/Resolved]
  - Dependent personality disorder [Unknown]
  - Rash [Unknown]
  - Lip erosion [Unknown]
  - Rash maculo-papular [Unknown]
  - Thinking abnormal [Unknown]

NARRATIVE: CASE EVENT DATE: 20120226
